FAERS Safety Report 4782499-4 (Version None)
Quarter: 2005Q3

REPORT INFORMATION
  Report Type: 
  Country: None (occurrence: None)
  Receive Date: 20050929
  Receipt Date: 20050111
  Transmission Date: 20060218
  Serious: No
  Sender: FDA-Public Use
  Company Number: 395974

PATIENT
  Age: 83 Year
  Sex: Female

DRUGS (3)
  1. COREG [Suspect]
     Dosage: 6.25MG TWICE PER DAY
     Route: 048
     Dates: start: 20041201
  2. LISINOPRIL [Concomitant]
  3. ALDACTONE [Concomitant]

REACTIONS (5)
  - ASTHENOPIA [None]
  - DIZZINESS [None]
  - DRY EYE [None]
  - OCULAR DISCOMFORT [None]
  - PHOTOPHOBIA [None]
